FAERS Safety Report 11068939 (Version 1)
Quarter: 2015Q2

REPORT INFORMATION
  Report Type: Spontaneous
  Country: US (occurrence: US)
  Receive Date: 20150427
  Receipt Date: 20150427
  Transmission Date: 20150821
  Serious: Yes (Death, Other)
  Sender: FDA-Public Use
  Company Number: PHHY2015US046467

PATIENT
  Age: 60 Year
  Sex: Male

DRUGS (4)
  1. CICLOSPORIN [Suspect]
     Active Substance: CYCLOSPORINE
     Indication: IMMUNOSUPPRESSION
  2. MYCOPHENOLATE MOFETIL. [Suspect]
     Active Substance: MYCOPHENOLATE MOFETIL
     Indication: IMMUNOSUPPRESSION
  3. CICLOSPORIN [Suspect]
     Active Substance: CYCLOSPORINE
     Indication: MYOCARDITIS
     Route: 065
  4. MYCOPHENOLATE MOFETIL. [Suspect]
     Active Substance: MYCOPHENOLATE MOFETIL
     Indication: MYOCARDITIS
     Route: 065

REACTIONS (6)
  - Myocarditis [Fatal]
  - Renal failure [Unknown]
  - Ventricular arrhythmia [Fatal]
  - Cardiac failure [Fatal]
  - Product use issue [Unknown]
  - Disease progression [Fatal]
